FAERS Safety Report 8334949-4 (Version None)
Quarter: 2012Q2

REPORT INFORMATION
  Report Type: 
  Country: None (occurrence: None)
  Receive Date: 20120503
  Receipt Date: 20100308
  Transmission Date: 20120825
  Serious: No
  Sender: FDA-Public Use
  Company Number: US-TEVA-2010001324

PATIENT
  Sex: Female
  Weight: 97.61 kg

DRUGS (21)
  1. VALIUM [Concomitant]
     Indication: TEMPOROMANDIBULAR JOINT SYNDROME
     Dosage: 10 MILLIGRAM;
     Dates: start: 19900101
  2. LYRICA [Concomitant]
     Indication: TRIGEMINAL NEURALGIA
  3. OXYCODONE HCL [Concomitant]
     Indication: TEMPOROMANDIBULAR JOINT SYNDROME
     Dates: start: 20080101
  4. ZANTAC [Concomitant]
     Dosage: 300 MILLIGRAM;
     Dates: start: 20000101
  5. NUVIGIL [Suspect]
     Indication: SLEEP APNOEA SYNDROME
     Route: 048
     Dates: start: 20100305
  6. LAMICTAL [Concomitant]
     Indication: TEMPOROMANDIBULAR JOINT SYNDROME
     Dates: start: 20091101
  7. CYMBALTA [Concomitant]
     Indication: TEMPOROMANDIBULAR JOINT SYNDROME
     Dosage: 60 MILLIGRAM;
     Dates: start: 20090101
  8. CYMBALTA [Concomitant]
     Indication: TRIGEMINAL NEURALGIA
  9. NASONEX [Concomitant]
  10. LYRICA [Concomitant]
     Indication: TEMPOROMANDIBULAR JOINT SYNDROME
     Dosage: 600 MILLIGRAM;
     Dates: start: 20100101
  11. CADUET [Concomitant]
     Indication: HYPERTENSION
     Dosage: 5 MILLIGRAM;
     Dates: start: 20000101
  12. CADUET [Concomitant]
     Indication: BLOOD CHOLESTEROL INCREASED
  13. LAMICTAL [Concomitant]
     Indication: TRIGEMINAL NEURALGIA
  14. VITAMINS, MINERALS AND SUPPLEMENTS [Concomitant]
  15. NAPROXEN (ALEVE) [Concomitant]
     Indication: TRIGEMINAL NEURALGIA
  16. VALIUM [Concomitant]
     Indication: TRIGEMINAL NEURALGIA
  17. BENICAR [Concomitant]
     Indication: HYPERTENSION
     Dosage: 20 MILLIGRAM;
     Dates: start: 20000101
  18. TYLENOL (CAPLET) [Concomitant]
  19. THYROID MEDICATION [Concomitant]
     Dosage: .5 MILLIGRAM;
     Dates: start: 20020101
  20. OXYCODONE HCL [Concomitant]
     Indication: TRIGEMINAL NEURALGIA
  21. NAPROXEN (ALEVE) [Concomitant]
     Indication: TEMPOROMANDIBULAR JOINT SYNDROME
     Dosage: 880 MILLIGRAM;
     Dates: start: 20040101

REACTIONS (3)
  - TEMPOROMANDIBULAR JOINT SYNDROME [None]
  - THERAPEUTIC RESPONSE UNEXPECTED [None]
  - STOMATITIS [None]
